FAERS Safety Report 26208905 (Version 1)
Quarter: 2025Q4

REPORT INFORMATION
  Report Type: Spontaneous
  Country: US (occurrence: None)
  Receive Date: 20251229
  Receipt Date: 20251229
  Transmission Date: 20260117
  Serious: Yes (Hospitalization)
  Sender: FDA-CTU
  Company Number: None

PATIENT
  Age: 62 Year
  Sex: Female

DRUGS (1)
  1. CYANOCOBALAMIN\GLYCINE\SEMAGLUTIDE [Suspect]
     Active Substance: CYANOCOBALAMIN\GLYCINE\SEMAGLUTIDE
     Dosage: OTHER FREQUENCY : ONCE WEEKLY;
     Route: 058
     Dates: start: 20250605, end: 20250922

REACTIONS (1)
  - Intestinal obstruction [None]

NARRATIVE: CASE EVENT DATE: 20250922
